FAERS Safety Report 7742711-6 (Version None)
Quarter: 2011Q3

REPORT INFORMATION
  Report Type: 
  Country: None (occurrence: None)
  Receive Date: 20110912
  Receipt Date: 20110907
  Transmission Date: 20111222
  Serious: Yes (Hospitalization, Other)
  Sender: FDA-Public Use
  Company Number: US-BRISTOL-MYERS SQUIBB COMPANY-15741036

PATIENT
  Age: 63 Year
  Sex: Female
  Weight: 47 kg

DRUGS (8)
  1. PROTONIX [Concomitant]
  2. SPIRIVA [Concomitant]
  3. SYMBICORT [Concomitant]
  4. PLAQUENIL [Concomitant]
  5. ORENCIA [Suspect]
     Indication: RHEUMATOID ARTHRITIS
     Dosage: INTERUPTED SEP'10; RESTARTD IN MAY11, 6SEP11
     Dates: start: 20090901
  6. ENBREL [Concomitant]
  7. ARAVA [Concomitant]
  8. CLOZAPINE [Concomitant]

REACTIONS (6)
  - ARTHROSCOPIC SURGERY [None]
  - PANCREATITIS [None]
  - INTERSTITIAL LUNG DISEASE [None]
  - CARDIAC DISORDER [None]
  - GASTRITIS [None]
  - CHRONIC OBSTRUCTIVE PULMONARY DISEASE [None]
